FAERS Safety Report 9585732 (Version 1)
Quarter: 2013Q4

REPORT INFORMATION
  Report Type: Spontaneous
  Country: US (occurrence: None)
  Receive Date: 20131002
  Receipt Date: 20131002
  Transmission Date: 20140711
  Serious: Yes (Life-Threatening, Disabling)
  Sender: FDA-Public Use
  Company Number: None

PATIENT
  Age: 61 Year
  Sex: Female
  Weight: 59.42 kg

DRUGS (9)
  1. PROLIA [Suspect]
     Indication: OSTEOPOROSIS
     Dosage: SQ EVERY 6 MONTHS INJECTION
     Route: 058
     Dates: start: 20120927, end: 20120927
  2. PRAVASTATIN [Concomitant]
  3. CLARITIN (LORATADINE) [Concomitant]
  4. BABY ASPIRIN [Concomitant]
  5. MIRALAX POWDER [Concomitant]
  6. MULTIVITAMIN [Concomitant]
  7. CALCIUM + VIT D [Concomitant]
  8. STOOL SOFTENER [Concomitant]
  9. METAMUCIL WAFER [Concomitant]

REACTIONS (7)
  - Cystitis [None]
  - Ear infection [None]
  - Osteoarthritis [None]
  - Ear pain [None]
  - Temporomandibular joint syndrome [None]
  - Pain in extremity [None]
  - Drug hypersensitivity [None]
